FAERS Safety Report 18888585 (Version 2)
Quarter: 2021Q1

REPORT INFORMATION
  Report Type: Report from Study
  Country: US (occurrence: US)
  Receive Date: 20210212
  Receipt Date: 20210223
  Transmission Date: 20210420
  Serious: Yes (Hospitalization, Other)
  Sender: FDA-Public Use
  Company Number: US-JNJFOC-20210213167

PATIENT
  Age: 50 Year
  Sex: Female
  Weight: 59.5 kg

DRUGS (4)
  1. MACITENTAN [Suspect]
     Active Substance: MACITENTAN
     Indication: PULMONARY ARTERIAL HYPERTENSION
     Route: 048
  2. ADEMPAS [Concomitant]
     Active Substance: RIOCIGUAT
  3. ORENITRAM [Concomitant]
     Active Substance: TREPROSTINIL
  4. TREPROSTINIL. [Concomitant]
     Active Substance: TREPROSTINIL

REACTIONS (9)
  - Weight decreased [Unknown]
  - Haemorrhage [Unknown]
  - Chest pain [Unknown]
  - Rash [Unknown]
  - Anaemia [Unknown]
  - Wheezing [Unknown]
  - Hospitalisation [Unknown]
  - Presyncope [Unknown]
  - Palpitations [Unknown]

NARRATIVE: CASE EVENT DATE: 20210124
